FAERS Safety Report 18723739 (Version 1)
Quarter: 2021Q1

REPORT INFORMATION
  Report Type: Spontaneous
  Country: US (occurrence: US)
  Receive Date: 20210109
  Receipt Date: 20210109
  Transmission Date: 20210419
  Serious: No
  Sender: FDA-Public Use
  Company Number: None

PATIENT
  Age: 60 Year
  Sex: Male
  Weight: 94.5 kg

DRUGS (1)
  1. SILDENAFIL CITRATE 100 MG [Suspect]
     Active Substance: SILDENAFIL CITRATE
     Indication: ERECTILE DYSFUNCTION
     Dosage: ?          QUANTITY:1 TABLET(S);?
     Route: 048
     Dates: start: 20201229, end: 20210104

REACTIONS (3)
  - Drug ineffective [None]
  - Product substitution issue [None]
  - Constipation [None]

NARRATIVE: CASE EVENT DATE: 20201229
